FAERS Safety Report 16688707 (Version 2)
Quarter: 2019Q3

REPORT INFORMATION
  Report Type: Spontaneous
  Country: CN (occurrence: CN)
  Receive Date: 20190809
  Receipt Date: 20190819
  Transmission Date: 20191004
  Serious: Yes (Other)
  Sender: FDA-Public Use
  Company Number: CN-PFIZER INC-2019335639

PATIENT
  Age: 52 Year
  Sex: Male

DRUGS (1)
  1. VIAGRA [Suspect]
     Active Substance: SILDENAFIL CITRATE
     Dosage: UNK
     Route: 048

REACTIONS (9)
  - Respiratory disorder [Recovered/Resolved]
  - Fatigue [Unknown]
  - Back pain [Recovered/Resolved]
  - Nasopharyngitis [Unknown]
  - Abdominal discomfort [Recovered/Resolved]
  - Asthenia [Unknown]
  - Pain [Recovered/Resolved]
  - Immunodeficiency [Unknown]
  - Poor quality sleep [Unknown]
